FAERS Safety Report 23230183 (Version 1)
Quarter: 2023Q4

REPORT INFORMATION
  Report Type: Spontaneous
  Country: US (occurrence: None)
  Receive Date: 20231124
  Receipt Date: 20231124
  Transmission Date: 20240110
  Serious: Yes (Other)
  Sender: FDA-Public Use
  Company Number: None

PATIENT
  Sex: Female

DRUGS (1)
  1. HUMIRA [Suspect]
     Active Substance: ADALIMUMAB
     Indication: Crohn^s disease
     Dosage: 40 MG/0.4ML??INJECT 0.4 ML (40 MG TOTAL) UNDER THE SKIN (SUBCUTANEOUS INJECTION) EVERY 7 DAYS? ?
     Route: 058
     Dates: start: 20210609

REACTIONS (3)
  - Intentional dose omission [None]
  - Surgery [None]
  - Discomfort [None]
